FAERS Safety Report 14260825 (Version 9)
Quarter: 2018Q1

REPORT INFORMATION
  Report Type: Spontaneous
  Country: FR (occurrence: FR)
  Receive Date: 20171207
  Receipt Date: 20180316
  Transmission Date: 20180508
  Serious: Yes (Hospitalization, Other)
  Sender: FDA-Public Use
  Company Number: FR-SA-2017SA240391

PATIENT
  Age: 34 Year
  Sex: Female

DRUGS (16)
  1. ROPIVACAINE [Suspect]
     Active Substance: ROPIVACAINE
     Indication: EPIDURAL ANALGESIA
     Route: 008
  2. ROPIVACAINE [Suspect]
     Active Substance: ROPIVACAINE
     Indication: EPIDURAL ANALGESIA
     Route: 065
  3. ROPIVACAINE [Suspect]
     Active Substance: ROPIVACAINE
     Indication: ANAESTHESIA
     Route: 065
  4. MORPHINE HYDROCHLORIDE [Suspect]
     Active Substance: MORPHINE HYDROCHLORIDE
     Indication: ANALGESIC THERAPY
     Route: 008
  5. SUFENTANIL [Suspect]
     Active Substance: SUFENTANIL
     Indication: EPIDURAL ANALGESIA
     Route: 008
  6. ENOXAPARIN SODIUM. [Suspect]
     Active Substance: ENOXAPARIN SODIUM
     Indication: THROMBOSIS PROPHYLAXIS
     Route: 058
  7. ACETYLSALICYLIC ACID [Suspect]
     Active Substance: ASPIRIN
     Route: 065
  8. LIDOCAINE. [Suspect]
     Active Substance: LIDOCAINE
     Indication: EPIDURAL ANALGESIA
     Dosage: INJECTION OF 15ML OF A SOLUTION OF 20 MG/ML
     Route: 008
  9. ADRENALIN [Suspect]
     Active Substance: EPINEPHRINE
     Indication: ANAESTHESIA
     Dosage: 15 ML OF LIDOCAINE 20MG/ML WITH ADRENALIN
     Route: 008
  10. ROPIVACAINE [Suspect]
     Active Substance: ROPIVACAINE
     Indication: ANAESTHESIA
     Route: 008
  11. PARACETAMOL [Suspect]
     Active Substance: ACETAMINOPHEN
     Indication: ANALGESIC THERAPY
     Route: 048
  12. LIDOCAINE. [Suspect]
     Active Substance: LIDOCAINE
     Indication: EPIDURAL ANALGESIA
     Dosage: 15 ML OF LIDOCAINE 20MG/ML WITH ADRENALIN
     Route: 008
  13. NEFOPAM [Suspect]
     Active Substance: NEFOPAM
     Indication: ANALGESIC THERAPY
     Route: 048
  14. KETOPROFENE [Suspect]
     Active Substance: KETOPROFEN
     Indication: ANALGESIC THERAPY
     Route: 048
  15. KETOPROFENE [Suspect]
     Active Substance: KETOPROFEN
     Indication: ANALGESIC THERAPY
     Route: 048
  16. PARACETAMOL [Suspect]
     Active Substance: ACETAMINOPHEN
     Indication: ANALGESIC THERAPY
     Route: 048

REACTIONS (12)
  - Paraesthesia [Recovered/Resolved]
  - Neuropathy peripheral [Recovered/Resolved]
  - Foetal heart rate abnormal [Recovering/Resolving]
  - Peripheral nerve injury [Recovered/Resolved]
  - Epistaxis [Unknown]
  - Live birth [Unknown]
  - Epidural analgesia [Unknown]
  - Nervous system disorder [Recovering/Resolving]
  - Spinal epidural haemorrhage [Recovered/Resolved]
  - Gait disturbance [Recovered/Resolved]
  - Maternal exposure during pregnancy [Unknown]
  - Product use issue [Unknown]
